FAERS Safety Report 9274822 (Version 4)
Quarter: 2013Q4

REPORT INFORMATION
  Report Type: Spontaneous
  Country: US (occurrence: US)
  Receive Date: 20130507
  Receipt Date: 20131015
  Transmission Date: 20140711
  Serious: Yes (Other)
  Sender: FDA-Public Use
  Company Number: US-JNJFOC-20130502352

PATIENT
  Sex: Female

DRUGS (8)
  1. TOPAMAX [Suspect]
     Indication: CONVULSION
     Route: 048
  2. TOPAMAX [Suspect]
     Indication: CONVULSION
     Route: 048
  3. TOPAMAX [Suspect]
     Indication: CONVULSION
     Route: 048
     Dates: end: 200704
  4. TOPAMAX [Suspect]
     Indication: CONVULSION
     Route: 048
     Dates: start: 200505
  5. KEPPRA [Suspect]
     Indication: CONVULSION
     Route: 048
  6. TRILEPTAL [Suspect]
     Indication: CONVULSION
     Route: 065
  7. PRENATAL VITAMINS [Concomitant]
     Route: 065
  8. FOLIC ACID [Concomitant]
     Route: 065

REACTIONS (2)
  - Premature labour [Recovered/Resolved]
  - Exposure during pregnancy [Recovered/Resolved]
